FAERS Safety Report 4289823-X (Version None)
Quarter: 2004Q1

REPORT INFORMATION
  Report Type: 
  Country: None (occurrence: None)
  Receive Date: 20040209
  Receipt Date: 20031208
  Transmission Date: 20041129
  Serious: No
  Sender: FDA-Public Use
  Company Number: US-GLAXOSMITHKLINE-A0442327A

PATIENT
  Age: 73 Year
  Sex: Female

DRUGS (4)
  1. PAXIL [Suspect]
     Indication: DEPRESSION
     Dosage: 12.5MG PER DAY
     Route: 048
     Dates: start: 20030701
  2. INDERAL [Concomitant]
  3. LOTREL [Concomitant]
  4. DIAZEPAM [Concomitant]

REACTIONS (1)
  - ANORGASMIA [None]
